FAERS Safety Report 6162967-3 (Version None)
Quarter: 2009Q2

REPORT INFORMATION
  Report Type: 
  Country: None (occurrence: None)
  Receive Date: 20090420
  Receipt Date: 20090407
  Transmission Date: 20091009
  Serious: Yes (Hospitalization)
  Sender: FDA-Public Use
  Company Number: 2009040021

PATIENT
  Age: 63 Year
  Sex: Male

DRUGS (4)
  1. ASTEPRO [Suspect]
     Indication: SINUSITIS
     Dosage: 274 MCG (274 MCG, 1 IN 1 D) IN
     Dates: start: 20090331, end: 20090331
  2. CLONAZEPAM [Concomitant]
  3. LISINOPRIL [Concomitant]
  4. SIMVASTATIN [Concomitant]

REACTIONS (1)
  - HYPERSENSITIVITY [None]
